FAERS Safety Report 9410388 (Version 2)
Quarter: 2013Q3

REPORT INFORMATION
  Report Type: Spontaneous
  Country: US (occurrence: US)
  Receive Date: 20130719
  Receipt Date: 20130919
  Transmission Date: 20140515
  Serious: Yes (Other)
  Sender: FDA-Public Use
  Company Number: US-GLAXOSMITHKLINE-A1033109A

PATIENT
  Age: 51 Year
  Sex: Female

DRUGS (4)
  1. ADVAIR [Suspect]
     Indication: PULMONARY SARCOIDOSIS
     Dosage: 1PUFF TWICE PER DAY
     Route: 055
     Dates: start: 201304
  2. ANTIBIOTICS [Concomitant]
  3. PREDNISONE [Concomitant]
  4. COUGH MEDICINE [Concomitant]

REACTIONS (6)
  - Haematochezia [Not Recovered/Not Resolved]
  - Abdominal pain upper [Not Recovered/Not Resolved]
  - Diarrhoea [Not Recovered/Not Resolved]
  - Dyspepsia [Not Recovered/Not Resolved]
  - Therapy cessation [Not Recovered/Not Resolved]
  - Gastroenteritis viral [Unknown]
